FAERS Safety Report 15968268 (Version 4)
Quarter: 2020Q4

REPORT INFORMATION
  Report Type: Spontaneous
  Country: FR (occurrence: FR)
  Receive Date: 20190215
  Receipt Date: 20201106
  Transmission Date: 20210113
  Serious: Yes (Hospitalization, Other)
  Sender: FDA-Public Use
  Company Number: FR-GRUNENTHAL-2019-11191

PATIENT
  Age: 57 Year
  Sex: Male

DRUGS (10)
  1. LAROXYL [Concomitant]
     Active Substance: AMITRIPTYLINE HYDROCHLORIDE
     Indication: NEURALGIA
     Dosage: 50 MILLIGRAM, 1/DAY
     Route: 065
  2. IXPRIM [Concomitant]
     Active Substance: ACETAMINOPHEN\TRAMADOL HYDROCHLORIDE
     Indication: NEURALGIA
     Dosage: 1 DOSAGE FORM, 3/DAY
     Route: 048
  3. QUTENZA [Suspect]
     Active Substance: CAPSAICIN
     Dosage: 1 DOSAGE FORM, QUARTERLY
     Route: 003
     Dates: start: 20181212, end: 20181212
  4. TRAMADOL HYDROCHLORIDE. [Concomitant]
     Active Substance: TRAMADOL HYDROCHLORIDE
     Indication: NEURALGIA
     Dosage: 100 MILLIGRAM, 1/DAY
     Route: 048
  5. BILASKA [Concomitant]
     Active Substance: BILASTINE
     Dosage: 1 DF, 1/DAY
     Route: 065
  6. QUTENZA [Suspect]
     Active Substance: CAPSAICIN
     Dosage: 1 DOSAGE FORM, QUARTERLY
     Route: 003
     Dates: start: 20180606, end: 20180606
  7. QUTENZA [Suspect]
     Active Substance: CAPSAICIN
     Indication: NEURALGIA
     Dosage: 1 DOSAGE FORM, QUARTERLY
     Route: 003
     Dates: start: 20180306, end: 20180306
  8. BILASKA [Concomitant]
     Active Substance: BILASTINE
     Indication: URTICARIA CHRONIC
     Dosage: 2 DF, 1/DAY
     Route: 048
  9. QUTENZA [Suspect]
     Active Substance: CAPSAICIN
     Dosage: 1 DOSAGE FORM, QUARTERLY
     Route: 003
     Dates: start: 20180905, end: 20180905
  10. NEURONTIN [Concomitant]
     Active Substance: GABAPENTIN
     Indication: NEURALGIA
     Dosage: 400 MILLIGRAM, 3/DAY
     Route: 048

REACTIONS (9)
  - Application site vesicles [Recovering/Resolving]
  - Application site ulcer [Recovering/Resolving]
  - Skin burning sensation [Unknown]
  - Application site papules [Recovering/Resolving]
  - Burns third degree [Recovering/Resolving]
  - Application site necrosis [Recovering/Resolving]
  - Application site pruritus [Recovered/Resolved]
  - Application site scar [Unknown]
  - Application site erythema [Unknown]

NARRATIVE: CASE EVENT DATE: 2018
